FAERS Safety Report 5584372-0 (Version None)
Quarter: 2008Q1

REPORT INFORMATION
  Report Type: 
  Country: None (occurrence: None)
  Receive Date: 20080108
  Receipt Date: 20080104
  Transmission Date: 20080703
  Serious: Yes (Other)
  Sender: FDA-Public Use
  Company Number: US-BRISTOL-MYERS SQUIBB COMPANY-13470786

PATIENT
  Age: 14 Year
  Sex: Female
  Weight: 28 kg

DRUGS (8)
  1. ATAZANAVIR SULFATE [Suspect]
     Indication: HIV INFECTION
     Route: 048
     Dates: start: 20051005
  2. STAVUDINE [Suspect]
     Indication: HIV INFECTION
     Route: 048
     Dates: start: 20051005
  3. LAMIVUDINE [Suspect]
     Indication: HIV INFECTION
     Route: 048
     Dates: start: 20051005
  4. BACTRIM [Concomitant]
     Dates: start: 20050801
  5. MULTI-VITAMIN [Concomitant]
     Dates: start: 20050801
  6. LASIX [Concomitant]
     Dates: start: 20060501
  7. ALDACTONE [Concomitant]
     Dates: start: 20060501
  8. LOSEC I.V. [Concomitant]
     Dates: start: 20060401

REACTIONS (4)
  - BILIRUBIN CONJUGATED INCREASED [None]
  - BLOOD BILIRUBIN UNCONJUGATED INCREASED [None]
  - HYPERBILIRUBINAEMIA [None]
  - JAUNDICE [None]
